FAERS Safety Report 4953511-4 (Version None)
Quarter: 2006Q1

REPORT INFORMATION
  Report Type: 
  Country: None (occurrence: None)
  Receive Date: 20060324
  Receipt Date: 20060313
  Transmission Date: 20060701
  Serious: Yes (Other)
  Sender: FDA-Public Use
  Company Number: BR-ROCHE-440036

PATIENT
  Age: 6 Year
  Sex: Female

DRUGS (4)
  1. RIVOTRIL [Suspect]
     Indication: EPILEPSY
     Route: 050
     Dates: start: 20000315, end: 20060315
  2. RIVOTRIL [Suspect]
     Route: 050
     Dates: start: 20060315
  3. TOPAMAX [Concomitant]
  4. GARDENAL [Concomitant]

REACTIONS (5)
  - BRADYCARDIA [None]
  - COORDINATION ABNORMAL [None]
  - OXYGEN SATURATION DECREASED [None]
  - PALLOR [None]
  - PETIT MAL EPILEPSY [None]
